FAERS Safety Report 5869678-X (Version None)
Quarter: 2008Q3

REPORT INFORMATION
  Report Type: 
  Country: None (occurrence: None)
  Receive Date: 20080902
  Receipt Date: 20080819
  Transmission Date: 20090109
  Serious: Yes (Hospitalization)
  Sender: FDA-Public Use
  Company Number: 2008AL004858

PATIENT
  Age: 83 Year
  Sex: Female

DRUGS (2)
  1. DIGOXIN [Suspect]
     Indication: CARDIAC FAILURE CONGESTIVE
     Dosage: 0.125MG DAILY PO
     Route: 048
  2. DIGOXIN [Suspect]
     Indication: PALPITATIONS
     Dosage: 0.125MG DAILY PO
     Route: 048

REACTIONS (7)
  - ANOREXIA [None]
  - ASTHENIA [None]
  - DIARRHOEA [None]
  - MUSCLE SPASMS [None]
  - NAUSEA [None]
  - SOMNOLENCE [None]
  - WEIGHT DECREASED [None]
